FAERS Safety Report 14559553 (Version 1)
Quarter: 2018Q1

REPORT INFORMATION
  Report Type: Spontaneous
  Country: US (occurrence: US)
  Receive Date: 20180221
  Receipt Date: 20180221
  Transmission Date: 20180509
  Serious: No
  Sender: FDA-Public Use
  Company Number: US-PFIZER INC-2018074580

PATIENT
  Age: 72 Year
  Sex: Female
  Weight: 58.96 kg

DRUGS (4)
  1. ADVIL LIQUI-GELS [Suspect]
     Active Substance: IBUPROFEN
     Indication: ARTHRITIS
     Dosage: 400 MG, 1X/DAY (2 EVERY MORNING )
     Route: 048
     Dates: start: 201711, end: 201801
  2. ADVIL LIQUI-GELS [Suspect]
     Active Substance: IBUPROFEN
     Indication: ARTHRALGIA
  3. ADVIL LIQUI-GELS [Suspect]
     Active Substance: IBUPROFEN
     Indication: INFLAMMATION
  4. ATORVASTATIN [Concomitant]
     Active Substance: ATORVASTATIN
     Indication: HYPERCHOLESTEROLAEMIA
     Dosage: 20 MG, 1X/DAY
     Route: 048
     Dates: start: 1998

REACTIONS (7)
  - Intentional product use issue [Recovered/Resolved]
  - Gastritis [Recovered/Resolved]
  - Wrong dose [Recovered/Resolved]
  - Dyspepsia [Recovered/Resolved]
  - Intentional product misuse [Recovered/Resolved]
  - Hiatus hernia [Recovered/Resolved]
  - Abdominal distension [Recovered/Resolved]

NARRATIVE: CASE EVENT DATE: 201711
